FAERS Safety Report 5923632-8 (Version None)
Quarter: 2008Q4

REPORT INFORMATION
  Report Type: 
  Country: None (occurrence: None)
  Receive Date: 20081020
  Receipt Date: 20081016
  Transmission Date: 20090506
  Serious: Yes (Other)
  Sender: FDA-Public Use
  Company Number: JP-ASTRAZENECA-2008AP06844

PATIENT
  Age: 71 Year
  Sex: Female
  Weight: 38 kg

DRUGS (7)
  1. IRESSA [Suspect]
     Indication: LUNG NEOPLASM MALIGNANT
     Route: 048
     Dates: start: 20080515, end: 20080619
  2. IRESSA [Suspect]
     Route: 048
     Dates: start: 20080807, end: 20080825
  3. ALFAROL [Concomitant]
     Indication: OSTEOPOROSIS
     Route: 048
     Dates: start: 20080515
  4. VONTROL [Concomitant]
     Indication: DIZZINESS
     Route: 048
     Dates: start: 20080515
  5. RIKKUNSHI-TO [Concomitant]
     Indication: GASTRITIS
     Route: 048
     Dates: start: 20080529, end: 20080618
  6. MUCOSTA [Concomitant]
     Indication: GASTRITIS
     Route: 048
     Dates: start: 20080619
  7. OMEPRAZOLE [Concomitant]
     Indication: GASTRITIS
     Route: 048
     Dates: start: 20080619

REACTIONS (3)
  - DECREASED APPETITE [None]
  - SKIN EXFOLIATION [None]
  - STOMATITIS [None]
